FAERS Safety Report 10177699 (Version 1)
Quarter: 2014Q2

REPORT INFORMATION
  Report Type: Spontaneous
  Country: US (occurrence: US)
  Receive Date: 20140516
  Receipt Date: 20140516
  Transmission Date: 20141212
  Serious: No
  Sender: FDA-Public Use
  Company Number: US-SA-2014SA020802

PATIENT
  Age: 51 Year
  Sex: Female

DRUGS (2)
  1. APIDRA SOLOSTAR [Suspect]
     Indication: TYPE 1 DIABETES MELLITUS
     Dosage: TAKEN FROM: 2 YEARS?DOSAGE: 1 UNIT FOR EVERY 10G?FREQUENCY: WITH MEALS
     Route: 065
  2. SOLOSTAR [Concomitant]

REACTIONS (2)
  - Injection site bruising [Unknown]
  - Drug administration error [Unknown]
